FAERS Safety Report 6591361-6 (Version None)
Quarter: 2010Q1

REPORT INFORMATION
  Report Type: 
  Country: None (occurrence: None)
  Receive Date: 20100219
  Receipt Date: 20100208
  Transmission Date: 20100710
  Serious: Yes (Other)
  Sender: FDA-Public Use
  Company Number: FR-WATSON-2010-01675

PATIENT
  Age: 83 Year
  Sex: Male

DRUGS (4)
  1. ISONIAZID [Suspect]
     Indication: TUBERCULOSIS
     Dosage: 5 MG/KG/D
  2. RIFATER [Suspect]
     Indication: TUBERCULOSIS
  3. ETHAMBUTOL [Suspect]
     Indication: TUBERCULOSIS
     Dosage: 20 MG/KG/D
  4. RIFAMPICIN [Suspect]
     Indication: TUBERCULOSIS
     Dosage: 8MG/KG/D

REACTIONS (1)
  - ANAPHYLACTIC REACTION [None]
